FAERS Safety Report 8158560-3 (Version None)
Quarter: 2012Q1

REPORT INFORMATION
  Report Type: 
  Country: None (occurrence: None)
  Receive Date: 20120223
  Receipt Date: 20120215
  Transmission Date: 20120608
  Serious: Yes (Hospitalization)
  Sender: FDA-Public Use
  Company Number: JP-JNJFOC-20110902107

PATIENT
  Sex: Female

DRUGS (7)
  1. PRIMPERAN TAB [Concomitant]
     Indication: PROPHYLAXIS OF NAUSEA AND VOMITING
     Route: 048
     Dates: start: 20110825, end: 20110827
  2. TRAMADOL HYDROCHLORIDE AND ACETAMINOPHEN [Suspect]
     Indication: OSTEOARTHRITIS
     Dosage: ONCE A DAY
     Route: 048
     Dates: start: 20110826, end: 20110826
  3. TRAMADOL HYDROCHLORIDE AND ACETAMINOPHEN [Suspect]
     Dosage: ONCE A DAY
     Route: 048
     Dates: start: 20110827, end: 20110827
  4. TRAMADOL HYDROCHLORIDE AND ACETAMINOPHEN [Suspect]
     Dosage: ONCE A DAY
     Route: 048
     Dates: start: 20110825, end: 20110825
  5. TRAMADOL HYDROCHLORIDE AND ACETAMINOPHEN [Suspect]
     Indication: PAIN
     Dosage: ONCE A DAY
     Route: 048
     Dates: start: 20110825, end: 20110825
  6. TRAMADOL HYDROCHLORIDE AND ACETAMINOPHEN [Suspect]
     Dosage: ONCE A DAY
     Route: 048
     Dates: start: 20110827, end: 20110827
  7. TRAMADOL HYDROCHLORIDE AND ACETAMINOPHEN [Suspect]
     Dosage: ONCE A DAY
     Route: 048
     Dates: start: 20110826, end: 20110826

REACTIONS (6)
  - PALLOR [None]
  - LOSS OF CONSCIOUSNESS [None]
  - DIZZINESS [None]
  - VOMITING [None]
  - CONVULSION [None]
  - NAUSEA [None]
